FAERS Safety Report 22361369 (Version 2)
Quarter: 2023Q2

REPORT INFORMATION
  Report Type: Report from Study
  Country: US (occurrence: US)
  Receive Date: 20230524
  Receipt Date: 20230622
  Transmission Date: 20230722
  Serious: Yes (Hospitalization, Other)
  Sender: FDA-Public Use
  Company Number: US-TAKEDA-2023TUS037085

PATIENT
  Sex: Female

DRUGS (2)
  1. MOBOCERTINIB [Suspect]
     Active Substance: MOBOCERTINIB
     Indication: Lung neoplasm malignant
     Dosage: 160 MILLIGRAM, QD
     Route: 048
  2. MOBOCERTINIB [Suspect]
     Active Substance: MOBOCERTINIB
     Dosage: 120 MILLIGRAM, QD
     Route: 048
     Dates: start: 20230427

REACTIONS (9)
  - Cerebrovascular accident [Unknown]
  - Deafness [Unknown]
  - Cataract [Unknown]
  - Skin weeping [Unknown]
  - Skin disorder [Unknown]
  - Staphylococcal infection [Unknown]
  - Acne [Unknown]
  - Rash [Unknown]
  - Nail disorder [Unknown]
